FAERS Safety Report 5404706-7 (Version None)
Quarter: 2007Q3

REPORT INFORMATION
  Report Type: 
  Country: None (occurrence: None)
  Receive Date: 20070731
  Receipt Date: 20070720
  Transmission Date: 20080115
  Serious: Yes (Hospitalization)
  Sender: FDA-Public Use
  Company Number: 2007-02421

PATIENT
  Age: 43 Year
  Sex: Female
  Weight: 78 kg

DRUGS (2)
  1. VELCADE [Suspect]
     Indication: MULTIPLE MYELOMA
     Dosage: INTRAVENOUS
     Route: 042
     Dates: start: 20070102, end: 20070423
  2. LENALIDOMIDE [Concomitant]

REACTIONS (3)
  - ACUTE ABDOMEN [None]
  - GASTROINTESTINAL NECROSIS [None]
  - THROMBOSIS MESENTERIC VESSEL [None]
